FAERS Safety Report 5921965-2 (Version None)
Quarter: 2008Q4

REPORT INFORMATION
  Report Type: 
  Country: None (occurrence: None)
  Receive Date: 20081017
  Receipt Date: 20081008
  Transmission Date: 20090506
  Serious: Yes (Death, Hospitalization, Other)
  Sender: FDA-Public Use
  Company Number: NSADSS2003007578

PATIENT
  Sex: Male
  Weight: 63.5 kg

DRUGS (23)
  1. REMICADE [Suspect]
     Route: 041
  2. REMICADE [Suspect]
     Route: 041
  3. REMICADE [Suspect]
     Route: 041
  4. REMICADE [Suspect]
     Route: 041
  5. REMICADE [Suspect]
     Route: 041
  6. REMICADE [Suspect]
     Route: 041
  7. REMICADE [Suspect]
     Route: 041
  8. REMICADE [Suspect]
     Route: 041
  9. REMICADE [Suspect]
     Route: 041
  10. REMICADE [Suspect]
     Route: 041
  11. REMICADE [Suspect]
     Route: 041
  12. REMICADE [Suspect]
     Route: 041
  13. REMICADE [Suspect]
     Indication: CROHN'S DISEASE
     Route: 041
  14. MERCAPTOPURINE [Suspect]
     Dosage: 25MG AM, 25MG PM
  15. MERCAPTOPURINE [Suspect]
     Dosage: 25MG AM, 25MG PM
  16. MERCAPTOPURINE [Suspect]
     Dosage: 25MG AM, 25MG PM
  17. MERCAPTOPURINE [Suspect]
     Indication: CROHN'S DISEASE
     Dosage: 25MG AM, 25MG PM
  18. AZATHIOPRINE [Concomitant]
     Indication: CROHN'S DISEASE
     Route: 048
     Dates: end: 20030208
  19. FOSAMAX [Concomitant]
     Route: 048
  20. IMURAN [Concomitant]
  21. PRILOSEC [Concomitant]
  22. PREDNISONE TAB [Concomitant]
  23. STEROIDS [Concomitant]

REACTIONS (13)
  - BACTERIAL INFECTION [None]
  - CELLULITIS [None]
  - EPSTEIN-BARR VIRUS INFECTION [None]
  - FATIGUE [None]
  - HEPATOSPLENIC T-CELL LYMPHOMA [None]
  - LARYNGITIS [None]
  - LEUKOCYTOCLASTIC VASCULITIS [None]
  - NIGHT SWEATS [None]
  - PHARYNGITIS [None]
  - PYREXIA [None]
  - SINUS HEADACHE [None]
  - THIRST [None]
  - VISION BLURRED [None]
